FAERS Safety Report 7472531-1 (Version None)
Quarter: 2011Q2

REPORT INFORMATION
  Report Type: 
  Country: None (occurrence: None)
  Receive Date: 20110502
  Receipt Date: 20110125
  Transmission Date: 20111010
  Serious: Yes (Death, Life-Threatening, Disabling, Other)
  Sender: FDA-Public Use
  Company Number: DSA_44495_2010

PATIENT
  Sex: Male

DRUGS (1)
  1. XENAZINE [Suspect]
     Indication: PRODUCT USED FOR UNKNOWN INDICATION
     Dosage: HALF OF A 25 MG TABLET TID AND ONE TABLET AT NIGHT (62.5 MG DAILY), ORAL
     Route: 048

REACTIONS (1)
  - ARTERIOVENOUS MALFORMATION [None]
